FAERS Safety Report 7597225-3 (Version None)
Quarter: 2011Q3

REPORT INFORMATION
  Report Type: 
  Country: None (occurrence: None)
  Receive Date: 20110708
  Receipt Date: 20101018
  Transmission Date: 20111222
  Serious: No
  Sender: FDA-Public Use
  Company Number: US-GLAXOSMITHKLINE-A0887403A

PATIENT
  Age: 76 Year
  Sex: Male

DRUGS (3)
  1. COZAAR [Concomitant]
  2. FLOVENT [Suspect]
     Indication: ASTHMA
     Dosage: 1PUFF TWICE PER DAY
     Route: 055
  3. ALBUTEROL SULFATE AUTOHALER [Concomitant]

REACTIONS (2)
  - AFFECTIVE DISORDER [None]
  - PRODUCTIVE COUGH [None]
